FAERS Safety Report 7509271-6 (Version None)
Quarter: 2011Q2

REPORT INFORMATION
  Report Type: 
  Country: None (occurrence: None)
  Receive Date: 20110527
  Receipt Date: 20110516
  Transmission Date: 20111010
  Serious: Yes (Life-Threatening, Hospitalization)
  Sender: FDA-Public Use
  Company Number: FR-ROCHE-778192

PATIENT
  Sex: Male

DRUGS (6)
  1. CISPLATIN [Suspect]
     Dosage: FIRST CYCLE
     Route: 042
  2. CISPLATIN [Suspect]
     Dosage: FREQUENCY: ONCE, LAST DOSE PRIOR SAE ON 14 APR 2011.
     Route: 042
     Dates: start: 20110414
  3. ALIMTA [Suspect]
     Dosage: FIRST CYCLE
     Route: 042
  4. AVASTIN [Suspect]
     Dosage: FIRST CYCLE
     Route: 042
  5. AVASTIN [Suspect]
     Dosage: STRENGTH: 25 MG/ML, FREQUENCY: ONCE,LAST DOSE PRIOR SAE ON 14 APR 2011.
     Route: 042
     Dates: start: 20110414
  6. ALIMTA [Suspect]
     Dosage: FREQUENCY: ONCE, LAST DOSE PRIOR SAE ON 14 APR 2011.
     Route: 042
     Dates: start: 20110414

REACTIONS (2)
  - SEPTIC SHOCK [None]
  - SECONDARY IMMUNODEFICIENCY [None]
